FAERS Safety Report 24772465 (Version 1)
Quarter: 2024Q4

REPORT INFORMATION
  Report Type: Other
  Country: CH (occurrence: CH)
  Receive Date: 20241224
  Receipt Date: 20241224
  Transmission Date: 20250114
  Serious: Yes (Hospitalization, Other)
  Sender: CAPLIN STERILES LIMITED
  Company Number: CH-Caplin Steriles Limited-2167705

PATIENT
  Age: 64 Year
  Sex: Female

DRUGS (10)
  1. TRANEXAMIC ACID [Suspect]
     Active Substance: TRANEXAMIC ACID
     Indication: Product used for unknown indication
  2. CHLORHEXIDINE GLUCONATE [Concomitant]
     Active Substance: CHLORHEXIDINE GLUCONATE
  3. DEXAMETHASONE [Concomitant]
     Active Substance: DEXAMETHASONE
  4. EPHEDRINE [Concomitant]
     Active Substance: EPHEDRINE
  5. ROCURONIUM [Concomitant]
     Active Substance: ROCURONIUM BROMIDE
  6. REMIFENTANIL HYDROCHLORIDE [Concomitant]
     Active Substance: REMIFENTANIL HYDROCHLORIDE
  7. PROPOFOL [Concomitant]
     Active Substance: PROPOFOL
  8. LIDOCAINE [Concomitant]
     Active Substance: LIDOCAINE
  9. FENTANYL [Concomitant]
     Active Substance: FENTANYL
  10. CEFUROXIME [Concomitant]
     Active Substance: CEFUROXIME

REACTIONS (2)
  - Anaphylactic shock [Unknown]
  - Cardiac arrest [Unknown]
